FAERS Safety Report 23774304 (Version 1)
Quarter: 2024Q2

REPORT INFORMATION
  Report Type: Spontaneous
  Country: US (occurrence: None)
  Receive Date: 20240423
  Receipt Date: 20240423
  Transmission Date: 20240716
  Serious: Yes (Death, Hospitalization)
  Sender: FDA-Public Use
  Company Number: None

PATIENT
  Age: 70 Year
  Sex: Male
  Weight: 57 kg

DRUGS (3)
  1. APIXABAN [Suspect]
     Active Substance: APIXABAN
     Indication: Haemorrhage
     Dosage: FREQUENCY : TWICE A DAY;?
     Route: 048
  2. APIXABAN [Suspect]
     Active Substance: APIXABAN
     Indication: Headache
  3. APIXABAN [Suspect]
     Active Substance: APIXABAN
     Indication: Cerebral haemorrhage

REACTIONS (5)
  - Haemorrhage [None]
  - Cerebral haemorrhage [None]
  - Dyspnoea [None]
  - Dyspnoea exertional [None]
  - Hypertension [None]

NARRATIVE: CASE EVENT DATE: 20230527
